FAERS Safety Report 15727830 (Version 1)
Quarter: 2018Q4

REPORT INFORMATION
  Report Type: Spontaneous
  Country: US (occurrence: US)
  Receive Date: 20181217
  Receipt Date: 20181217
  Transmission Date: 20190205
  Serious: No
  Sender: FDA-Public Use
  Company Number: US-PFIZER INC-2018497955

PATIENT
  Age: 55 Year
  Sex: Female

DRUGS (2)
  1. CELEBREX [Suspect]
     Active Substance: CELECOXIB
     Indication: NECK PAIN
     Dosage: 200 MG, AS NEEDED (TAKE 1 CAPSULE BY ORAL ROUTE 2 TIMES EVERY DAY AS NEEDED)
     Route: 048
  2. CELEBREX [Suspect]
     Active Substance: CELECOXIB
     Indication: BACK PAIN

REACTIONS (2)
  - Impaired work ability [Unknown]
  - Drug ineffective [Unknown]
